FAERS Safety Report 23890495 (Version 1)
Quarter: 2024Q2

REPORT INFORMATION
  Report Type: Spontaneous
  Country: PT (occurrence: PT)
  Receive Date: 20240523
  Receipt Date: 20240523
  Transmission Date: 20240716
  Serious: Yes (Other)
  Sender: FDA-Public Use
  Company Number: PT-FreseniusKabi-FK202408207

PATIENT
  Age: 88 Year
  Sex: Male

DRUGS (6)
  1. BORTEZOMIB [Suspect]
     Active Substance: BORTEZOMIB
     Indication: Plasma cell myeloma
     Dosage: 5 CYCLES ?FORM OF ADMIN: INJECTABLE
  2. DEXAMETHASONE [Concomitant]
     Active Substance: DEXAMETHASONE
     Indication: Pain
     Dosage: 5 CYCLES OF BORTEZOMIB/?MELPHALAN/DEXAMETHASONE,
  3. LENALIDOMIDE [Concomitant]
     Active Substance: LENALIDOMIDE
     Indication: Plasma cell myeloma
     Dosage: TREATMENT WITH BORTEZOMIB/LENALIDOMIDE/DEXAMETHASONE AS A BRIDGE FOR TREATMENT WITH IXAZOMIB
  4. LENALIDOMIDE [Concomitant]
     Active Substance: LENALIDOMIDE
     Dosage: REGIMEN WITH IXAZOMIB/LENALIDOMIDE/?DEXAMETHASONE
  5. MELPHALAN [Concomitant]
     Active Substance: MELPHALAN
     Indication: Plasma cell myeloma
     Dosage: 5 CYCLES OF BORTEZOMIB/MELPHALAN/DEXAMETHASONE
  6. IXAZOMIB [Concomitant]
     Active Substance: IXAZOMIB
     Indication: Plasma cell myeloma
     Dosage: REGIMEN WITH IXAZOMIB/LENALIDOMIDE/DEXAMETHASONE

REACTIONS (1)
  - Neurotoxicity [Unknown]
